FAERS Safety Report 14612464 (Version 4)
Quarter: 2022Q1

REPORT INFORMATION
  Report Type: Report from Study
  Country: GB (occurrence: GB)
  Receive Date: 20180308
  Receipt Date: 20220113
  Transmission Date: 20220423
  Serious: Yes (Death, Other)
  Sender: FDA-Public Use
  Company Number: GB-AUROBINDO-AUR-APL-2018-012127

PATIENT
  Sex: Male

DRUGS (3)
  1. CITALOPRAM [Suspect]
     Active Substance: CITALOPRAM HYDROBROMIDE
     Indication: Product used for unknown indication
     Dosage: INGESTED EXCESSIVE AMOUNTS OF CITALOPRAM
     Route: 048
  2. MIRTAZAPINE [Suspect]
     Active Substance: MIRTAZAPINE
     Indication: Product used for unknown indication
     Dosage: INGESTED EXCESSIVE AMOUNTS OF CITALOPRAM
     Route: 048
  3. TRAMADOL [Suspect]
     Active Substance: TRAMADOL
     Indication: Product used for unknown indication
     Dosage: INGESTED EXCESSIVE AMOUNTS OF TRAMADOL
     Route: 048

REACTIONS (5)
  - Overdose [Fatal]
  - Completed suicide [Fatal]
  - Death [Fatal]
  - Intentional overdose [Fatal]
  - Suicide attempt [Unknown]
